FAERS Safety Report 21039575 (Version 5)
Quarter: 2023Q2

REPORT INFORMATION
  Report Type: Spontaneous
  Country: IN (occurrence: IN)
  Receive Date: 20220704
  Receipt Date: 20230615
  Transmission Date: 20230722
  Serious: Yes (Other)
  Sender: FDA-Public Use
  Company Number: IN-PFIZER INC-PV202200012086

PATIENT
  Age: 74 Year
  Sex: Female

DRUGS (7)
  1. PALBOCICLIB [Suspect]
     Active Substance: PALBOCICLIB
     Indication: Breast cancer metastatic
     Dosage: 125 MG, ONCE DAILY, D1-21, 7 DAY OFF
     Route: 048
     Dates: start: 20211020
  2. LETROZOLE [Concomitant]
     Active Substance: LETROZOLE
     Dosage: 2.5 MG, 1X/DAY
  3. CCM [Concomitant]
     Dosage: UNK, 1X/DAY
  4. TOLVAPTAN [Concomitant]
     Active Substance: TOLVAPTAN
     Dosage: 15 MG, 1X/DAY
  5. SOIHENZ [Concomitant]
     Dosage: UNK, 2X/DAY
  6. VITAMIN D3 [Concomitant]
     Active Substance: CHOLECALCIFEROL
     Dosage: UNK, WEEKLY
  7. FEBUXOSTAT [Concomitant]
     Active Substance: FEBUXOSTAT
     Dosage: 40 MG, 2X/DAY

REACTIONS (6)
  - Blood sodium decreased [Unknown]
  - Haemoglobin decreased [Unknown]
  - White blood cell count decreased [Unknown]
  - Bundle branch block right [Unknown]
  - Blood creatinine increased [Unknown]
  - Blood uric acid increased [Unknown]
